FAERS Safety Report 4326519-X (Version None)
Quarter: 2004Q1

REPORT INFORMATION
  Report Type: 
  Country: None (occurrence: None)
  Receive Date: 20040323
  Receipt Date: 20031202
  Transmission Date: 20041129
  Serious: Yes (Other)
  Sender: FDA-Public Use
  Company Number: 0300021EN0020P

PATIENT
  Age: 21 Year
  Sex: Male
  Weight: 79 kg

DRUGS (5)
  1. ONCASPAR [Suspect]
     Indication: ACUTE LYMPHOCYTIC LEUKAEMIA
     Dosage: 4750 UT J IV
     Route: 042
     Dates: start: 20030827, end: 20030912
  2. KIDROLASE [Concomitant]
  3. METHOTREXATE [Concomitant]
  4. ONCOVIN [Concomitant]
  5. PURINETHOL [Concomitant]

REACTIONS (2)
  - BRONCHOSPASM [None]
  - URTICARIA [None]
